FAERS Safety Report 4335768-6 (Version None)
Quarter: 2004Q2

REPORT INFORMATION
  Report Type: 
  Country: None (occurrence: None)
  Receive Date: 20040409
  Receipt Date: 20040329
  Transmission Date: 20050107
  Serious: Yes (Hospitalization)
  Sender: FDA-Public Use
  Company Number: FR-BRISTOL-MYERS SQUIBB COMPANY-12545109

PATIENT
  Age: 87 Year
  Sex: Male

DRUGS (2)
  1. COUMADIN [Suspect]
     Dosage: 4MG/D STARTING ON 19-DEC-2003 AND THEN REDUCED TO 3MG/D ON 22-DEC-2003.THERAPY WAS INTERRUPTED
     Route: 048
     Dates: start: 20031219
  2. PREVISCAN [Concomitant]
     Dates: start: 20030901, end: 20031219

REACTIONS (4)
  - GASTROINTESTINAL HAEMORRHAGE [None]
  - HAEMATURIA [None]
  - OESOPHAGITIS ULCERATIVE [None]
  - PULMONARY EMBOLISM [None]
